FAERS Safety Report 9880935 (Version 3)
Quarter: 2014Q2

REPORT INFORMATION
  Report Type: Spontaneous
  Country: US (occurrence: None)
  Receive Date: 20140204
  Receipt Date: 20140527
  Transmission Date: 20141212
  Serious: Yes (Death, Hospitalization, Other)
  Sender: FDA-Public Use
  Company Number: 2014US002995

PATIENT
  Age: 79 Year
  Sex: Female
  Weight: 72 kg

DRUGS (10)
  1. PONATINIB (AP24534) TABLET [Suspect]
     Indication: ACUTE LYMPHOCYTIC LEUKAEMIA
     Route: 048
     Dates: start: 20140104, end: 20140115
  2. DEXAMETHASONE [Suspect]
     Indication: PRODUCT USED FOR UNKNOWN INDICATION
     Dosage: 20 MG, 4 DAYS ON, 4 DAYS OFF
     Dates: start: 20140104, end: 20140115
  3. ALLOPURINOL (ALLOPURINOL) [Concomitant]
  4. LASIX (FUROSEMIDE) [Concomitant]
  5. NORVASC (AMLODIPINE BESILATE) [Concomitant]
  6. BACTRIM (SULFAMETHOXAZOLE, TRIMETHOPRIM) [Concomitant]
  7. XANAX (ALPRAZOLAM) [Concomitant]
  8. DIGOXIN (BETA-ACETYLDIGOXIN) [Concomitant]
  9. METOPROLOL (METOPROLOL TARTRATE) [Concomitant]
  10. ADVAIR (FLUTICASONE PROPIONATE, SALMETEROL XINAFOATE) [Concomitant]

REACTIONS (24)
  - Oedema peripheral [None]
  - Pleural effusion [None]
  - Fatigue [None]
  - Hyperglycaemia [None]
  - Performance status decreased [None]
  - Mental status changes [None]
  - Fluid overload [None]
  - Pneumonia [None]
  - Dyspnoea [None]
  - Asthenia [None]
  - Urinary retention [None]
  - Confusional state [None]
  - Cardiac failure congestive [None]
  - Hypertension [None]
  - Oral herpes [None]
  - Transaminases increased [None]
  - Acute lymphocytic leukaemia [None]
  - Malignant neoplasm progression [None]
  - Hypoglycaemia [None]
  - Rash [None]
  - Tumour lysis syndrome [None]
  - Leukocytosis [None]
  - Asthenia [None]
  - Hyperglycaemia [None]
